FAERS Safety Report 15227790 (Version 2)
Quarter: 2018Q3

REPORT INFORMATION
  Report Type: Report from Study
  Country: RO (occurrence: RO)
  Receive Date: 20180801
  Receipt Date: 20180906
  Transmission Date: 20181010
  Serious: Yes (Death, Hospitalization, Other)
  Sender: FDA-Public Use
  Company Number: RO-GILEAD-2018-0335953

PATIENT
  Age: 58 Year
  Sex: Female

DRUGS (8)
  1. URSOFALK [Concomitant]
     Active Substance: URSODIOL
  2. ENTERAL                            /00463501/ [Concomitant]
  3. DIUREX                             /00022001/ [Concomitant]
  4. LEDIPASVIR/SOFOSBUVIR [Suspect]
     Active Substance: LEDIPASVIR\SOFOSBUVIR
     Indication: HEPATITIS C
     Dosage: 1 DF, QD
     Route: 048
     Dates: start: 20180324, end: 20180615
  5. LEDIPASVIR/SOFOSBUVIR [Suspect]
     Active Substance: LEDIPASVIR\SOFOSBUVIR
     Indication: HEPATIC CIRRHOSIS
  6. RIBAVIRIN. [Suspect]
     Active Substance: RIBAVIRIN
     Indication: HEPATITIS C
     Dosage: 3 DF, QD
     Route: 048
     Dates: start: 20180324, end: 20180402
  7. VANCOMICINA                        /00314401/ [Concomitant]
  8. RIBAVIRIN. [Suspect]
     Active Substance: RIBAVIRIN
     Indication: HEPATIC CIRRHOSIS

REACTIONS (26)
  - Hypersplenism [Unknown]
  - Ovarian neoplasm [Unknown]
  - Flank pain [Unknown]
  - Bundle branch block right [Unknown]
  - Electrocardiogram T wave abnormal [Unknown]
  - Sepsis [Unknown]
  - Hepatic mass [Unknown]
  - Cholelithiasis [Unknown]
  - Obesity [Unknown]
  - Nausea [Unknown]
  - Oesophageal varices haemorrhage [Unknown]
  - Appetite disorder [Unknown]
  - Rash macular [Not Recovered/Not Resolved]
  - Death [Fatal]
  - Electrocardiogram QRS complex abnormal [Unknown]
  - Splenomegaly [Unknown]
  - Haemoglobin decreased [Recovered/Resolved]
  - Disseminated intravascular coagulation [Unknown]
  - Abdominal pain lower [Unknown]
  - Jaundice [Unknown]
  - General physical health deterioration [Unknown]
  - Asthenia [Unknown]
  - Cardio-respiratory arrest [Unknown]
  - Sinus arrest [Unknown]
  - Hepatic function abnormal [Unknown]
  - Bradycardia [Unknown]

NARRATIVE: CASE EVENT DATE: 2018
